FAERS Safety Report 7418426-0 (Version None)
Quarter: 2011Q2

REPORT INFORMATION
  Report Type: 
  Country: None (occurrence: None)
  Receive Date: 20110415
  Receipt Date: 20110407
  Transmission Date: 20111010
  Serious: Yes (Other)
  Sender: FDA-Public Use
  Company Number: PHHY2011US29319

PATIENT
  Age: 46 Year
  Sex: Female
  Weight: 86 kg

DRUGS (4)
  1. CRANBERRY JUICE [Interacting]
     Dosage: 1893 ML, UNK
     Route: 048
  2. CRANBERRY JUICE [Interacting]
     Indication: CONSTIPATION
     Dosage: 1420 ML, UNK
     Route: 048
  3. WARFARIN [Suspect]
     Dosage: 56 MG, QW
  4. ACETAMINOPHEN [Concomitant]

REACTIONS (4)
  - VAGINAL HAEMORRHAGE [None]
  - INTERNATIONAL NORMALISED RATIO INCREASED [None]
  - DRUG INTERACTION [None]
  - CONSTIPATION [None]
